FAERS Safety Report 4724103-7 (Version None)
Quarter: 2005Q3

REPORT INFORMATION
  Report Type: 
  Country: None (occurrence: None)
  Receive Date: 20050722
  Receipt Date: 20050714
  Transmission Date: 20060218
  Serious: No
  Sender: FDA-Public Use
  Company Number: ZONI002188

PATIENT
  Age: 3 Year
  Sex: Male

DRUGS (4)
  1. ZONISAMIDE [Suspect]
     Dosage: 200 MG, 2 IN 1 D, ORAL
     Route: 048
  2. SODIUM (VALPROPRATE SODIUM) [Concomitant]
  3. L-CARNITINE [Concomitant]
  4. NITRAZEPAM [Concomitant]

REACTIONS (2)
  - CONVULSION [None]
  - NEPHROLITHIASIS [None]
